FAERS Safety Report 9806035 (Version 2)
Quarter: 2014Q1

REPORT INFORMATION
  Report Type: Spontaneous
  Country: US (occurrence: US)
  Receive Date: 20140109
  Receipt Date: 20140213
  Transmission Date: 20141002
  Serious: Yes (Hospitalization)
  Sender: FDA-Public Use
  Company Number: US-SA-2014SA002024

PATIENT
  Age: 60 Year
  Sex: Female
  Weight: 70.5 kg

DRUGS (1)
  1. HECTOROL [Suspect]
     Indication: PRODUCT USED FOR UNKNOWN INDICATION
     Route: 042
     Dates: start: 20131221, end: 20131221

REACTIONS (3)
  - Unresponsive to stimuli [Recovered/Resolved]
  - Glomerular filtration rate decreased [Unknown]
  - Blood pressure increased [Unknown]
